FAERS Safety Report 6003367-6 (Version None)
Quarter: 2008Q4

REPORT INFORMATION
  Report Type: 
  Country: None (occurrence: None)
  Receive Date: 20081216
  Receipt Date: 20080703
  Transmission Date: 20090506
  Serious: No
  Sender: FDA-Public Use
  Company Number: US-AMGEN-KDL292523

PATIENT
  Sex: Female

DRUGS (2)
  1. ENBREL [Suspect]
     Indication: PSORIATIC ARTHROPATHY
     Dates: start: 20071022
  2. ENBREL [Suspect]
     Indication: PSORIASIS

REACTIONS (3)
  - ABDOMINAL PAIN [None]
  - BURSITIS [None]
  - DYSPEPSIA [None]
